FAERS Safety Report 10361368 (Version 3)
Quarter: 2014Q4

REPORT INFORMATION
  Report Type: Spontaneous
  Country: ES (occurrence: ES)
  Receive Date: 20140805
  Receipt Date: 20141029
  Transmission Date: 20150528
  Serious: Yes (Other)
  Sender: FDA-Public Use
  Company Number: ES-AMGEN-ESPSP2014052865

PATIENT
  Age: 64 Year
  Sex: Female
  Weight: 73 kg

DRUGS (1)
  1. PROLIA [Suspect]
     Active Substance: DENOSUMAB
     Indication: OSTEOPOROSIS POSTMENOPAUSAL
     Dosage: 3 UNIT, Q6MO
     Route: 058
     Dates: start: 201207, end: 201307

REACTIONS (5)
  - Sjogren^s syndrome [Unknown]
  - Antinuclear antibody positive [Unknown]
  - Mouth ulceration [Unknown]
  - Tongue oedema [Unknown]
  - Aphthous stomatitis [Unknown]

NARRATIVE: CASE EVENT DATE: 201306
